FAERS Safety Report 11705029 (Version 2)
Quarter: 2015Q4

REPORT INFORMATION
  Report Type: Spontaneous
  Country: PE (occurrence: PE)
  Receive Date: 20151106
  Receipt Date: 20151125
  Transmission Date: 20160304
  Serious: Yes (Other)
  Sender: FDA-Public Use
  Company Number: PE-PFIZER INC-2015373989

PATIENT
  Age: 95 Year
  Sex: Male

DRUGS (2)
  1. DICLOFENACO /00372301/ [Concomitant]
  2. NORVASC [Suspect]
     Active Substance: AMLODIPINE BESYLATE

REACTIONS (1)
  - Intestinal haemorrhage [Not Recovered/Not Resolved]
